FAERS Safety Report 8435552-8 (Version None)
Quarter: 2012Q2

REPORT INFORMATION
  Report Type: 
  Country: None (occurrence: None)
  Receive Date: 20120608
  Receipt Date: 20120604
  Transmission Date: 20120825
  Serious: Yes (Hospitalization)
  Sender: FDA-Public Use
  Company Number: 2009SP004015

PATIENT
  Age: 53 Year
  Sex: Male

DRUGS (2)
  1. TEMODAL [Suspect]
     Indication: MALIGNANT OLIGODENDROGLIOMA
     Dosage: 170 MG;QD;PO
     Route: 048
     Dates: start: 20080111, end: 20080115
  2. CARMUSTINE [Suspect]
     Indication: MALIGNANT OLIGODENDROGLIOMA
     Dosage: 234 MG;ONCE;IV
     Route: 042
     Dates: start: 20080109, end: 20080109

REACTIONS (2)
  - FAECALOMA [None]
  - CONSTIPATION [None]
